FAERS Safety Report 4906328-0 (Version None)
Quarter: 2006Q1

REPORT INFORMATION
  Report Type: 
  Country: None (occurrence: None)
  Receive Date: 20060209
  Receipt Date: 20060203
  Transmission Date: 20060701
  Serious: Yes (Death, Hospitalization)
  Sender: FDA-Public Use
  Company Number: US-JNJFOC-20060201416

PATIENT
  Sex: Female
  Weight: 63.5 kg

DRUGS (8)
  1. LEVAQUIN [Suspect]
     Indication: INFECTION
     Route: 048
  2. LANOXIN [Concomitant]
  3. SPIRONOLACTONE [Concomitant]
     Indication: BLOOD PRESSURE
  4. CARNITOR [Concomitant]
  5. TRUSOPT [Concomitant]
     Indication: GLAUCOMA
  6. XALATAN [Concomitant]
     Indication: GLAUCOMA
  7. LASIX [Concomitant]
  8. ASPIRIN [Concomitant]

REACTIONS (3)
  - CARDIAC FAILURE [None]
  - MYOCARDIAL INFARCTION [None]
  - RECTAL HAEMORRHAGE [None]
